FAERS Safety Report 17977265 (Version 2)
Quarter: 2020Q3

REPORT INFORMATION
  Report Type: Report from Study
  Country: None (occurrence: US)
  Receive Date: 20200702
  Receipt Date: 20200707
  Transmission Date: 20201103
  Serious: Yes (Hospitalization)
  Sender: FDA-Public Use
  Company Number: US-ABBVIE-20K-163-3466050-00

PATIENT
  Age: 68 Year
  Sex: Female
  Weight: 77.18 kg

DRUGS (6)
  1. CYMBALTA [Concomitant]
     Active Substance: DULOXETINE HYDROCHLORIDE
     Indication: FIBROMYALGIA
  2. METAMUCIL [Concomitant]
     Active Substance: PLANTAGO SEED
     Indication: PRODUCT USED FOR UNKNOWN INDICATION
  3. AVAPRO [Concomitant]
     Active Substance: IRBESARTAN
     Indication: BLOOD PRESSURE MEASUREMENT
  4. ATENOLOL. [Concomitant]
     Active Substance: ATENOLOL
     Indication: HEART RATE INCREASED
  5. RINVOQ [Suspect]
     Active Substance: UPADACITINIB
     Indication: RHEUMATOID ARTHRITIS
     Route: 048
     Dates: start: 20200526, end: 202006
  6. FOLIC ACID. [Concomitant]
     Active Substance: FOLIC ACID
     Indication: PRODUCT USED FOR UNKNOWN INDICATION

REACTIONS (12)
  - Gastrointestinal disorder [Unknown]
  - Retching [Recovered/Resolved]
  - Cough [Recovering/Resolving]
  - Eructation [Recovered/Resolved]
  - Feeling abnormal [Recovered/Resolved]
  - Hypophagia [Recovered/Resolved]
  - Mobility decreased [Unknown]
  - Intestinal obstruction [Recovered/Resolved]
  - Frequent bowel movements [Recovered/Resolved]
  - Abdominal discomfort [Recovering/Resolving]
  - Rhinorrhoea [Recovering/Resolving]
  - Asthenia [Recovered/Resolved]

NARRATIVE: CASE EVENT DATE: 2020
